FAERS Safety Report 18051515 (Version 1)
Quarter: 2020Q3

REPORT INFORMATION
  Report Type: Spontaneous
  Country: TR (occurrence: TR)
  Receive Date: 20200721
  Receipt Date: 20200721
  Transmission Date: 20201103
  Serious: Yes (Life-Threatening, Hospitalization, Other)
  Sender: FDA-Public Use
  Company Number: TR-STEMLINE THERAPEUTICS, INC.-2020ST000042

PATIENT
  Age: 16 Year
  Sex: Male

DRUGS (8)
  1. POSACONAZOLE [Concomitant]
     Active Substance: POSACONAZOLE
     Indication: FUNGAL INFECTION
     Route: 048
     Dates: start: 201907, end: 202007
  2. UDCA [Concomitant]
     Active Substance: URSODIOL
     Indication: HEPATOTOXICITY
     Route: 048
     Dates: start: 20200524, end: 20200528
  3. PIPERACILLIN AND TAZOBACTAM [Concomitant]
     Active Substance: PIPERACILLIN SODIUM\TAZOBACTAM SODIUM
     Indication: C-REACTIVE PROTEIN INCREASED
     Route: 042
     Dates: start: 20200623, end: 20200630
  4. ELZONRIS [Suspect]
     Active Substance: TAGRAXOFUSP-ERZS
     Route: 042
     Dates: start: 20200624, end: 20200626
  5. ELZONRIS [Suspect]
     Active Substance: TAGRAXOFUSP-ERZS
     Indication: BLASTIC PLASMACYTOID DENDRITIC CELL NEOPLASIA
     Route: 042
     Dates: start: 20200521, end: 20200528
  6. PIPERACILLIN AND TAZOBACTAM [Concomitant]
     Active Substance: PIPERACILLIN SODIUM\TAZOBACTAM SODIUM
     Indication: PYREXIA
     Route: 042
     Dates: start: 20200522, end: 20200602
  7. N. ASETIL SISTEIN [Concomitant]
     Indication: HEPATOTOXICITY
     Route: 048
     Dates: start: 20200524, end: 20200528
  8. RANITIDINE. [Concomitant]
     Active Substance: RANITIDINE
     Indication: GASTRITIS
     Route: 042
     Dates: start: 20200623, end: 20200630

REACTIONS (3)
  - Capillary leak syndrome [Recovered/Resolved]
  - Seizure [Recovered/Resolved]
  - Hepatotoxicity [Recovered/Resolved]

NARRATIVE: CASE EVENT DATE: 20200524
